FAERS Safety Report 9579873 (Version 3)
Quarter: 2013Q4

REPORT INFORMATION
  Report Type: Report from Study
  Country: FR (occurrence: FR)
  Receive Date: 20131002
  Receipt Date: 20131028
  Transmission Date: 20140711
  Serious: Yes (Other)
  Sender: FDA-Public Use
  Company Number: FR-ROCHE-1277675

PATIENT
  Age: 57 Year
  Sex: Female
  Weight: 63 kg

DRUGS (7)
  1. BEVACIZUMAB [Suspect]
     Indication: HER-2 POSITIVE BREAST CANCER
     Route: 065
  2. TRASTUZUMAB [Suspect]
     Indication: HER-2 POSITIVE BREAST CANCER
     Route: 065
  3. AVLOCARDYL [Concomitant]
     Indication: PALPITATIONS
     Route: 065
  4. XANAX [Concomitant]
  5. EFFEXOR [Concomitant]
  6. LEVOTHYROXINE [Concomitant]
  7. ARIMIDEX [Concomitant]

REACTIONS (1)
  - Myocardial infarction [Unknown]
